FAERS Safety Report 9493298 (Version 2)
Quarter: 2013Q3

REPORT INFORMATION
  Report Type: Report from Study
  Country: IT (occurrence: IT)
  Receive Date: 20130902
  Receipt Date: 20130902
  Transmission Date: 20140515
  Serious: Yes (Death, Hospitalization)
  Sender: FDA-Public Use
  Company Number: PHHO2011IT11658

PATIENT
  Age: 66 Year
  Sex: Male
  Weight: 90 kg

DRUGS (9)
  1. ALISKIREN [Suspect]
     Indication: CARDIOVASCULAR DISORDER
     Route: 048
     Dates: start: 20080505, end: 20110707
  2. LASIX [Concomitant]
     Indication: HYPERTENSION
     Dosage: 25 MG, UNK
     Dates: start: 20070220
  3. ZOLOFT [Concomitant]
     Indication: DEPRESSION
     Dosage: 50 MG, UNK
     Dates: start: 20070220
  4. CARDURA [Concomitant]
     Indication: HYPERTENSION
     Dosage: 7.5/1200
     Dates: start: 2006
  5. CARDIOASPIRIN [Concomitant]
     Indication: CEREBROVASCULAR ACCIDENT
     Dosage: 100
     Dates: start: 200801
  6. CARDIOASPIRIN [Concomitant]
  7. ENAPREN [Concomitant]
     Indication: HYPERTENSION
     Dosage: 20 UNK, UNK
     Dates: start: 200806
  8. CARDICOR [Concomitant]
     Indication: HYPERTENSION
     Dosage: 1.25 MG, UNK
     Dates: start: 200806
  9. GLIBOMET [Concomitant]
     Indication: CEREBROVASCULAR ACCIDENT
     Dosage: 100 MG, UNK
     Dates: start: 20080123, end: 20110810

REACTIONS (4)
  - Renal failure [Fatal]
  - Anaemia [Fatal]
  - Aphasia [Not Recovered/Not Resolved]
  - Disease progression [Not Recovered/Not Resolved]
